FAERS Safety Report 24664231 (Version 1)
Quarter: 2024Q4

REPORT INFORMATION
  Report Type: Spontaneous
  Country: JP (occurrence: JP)
  Receive Date: 20241126
  Receipt Date: 20241126
  Transmission Date: 20250115
  Serious: Yes (Other)
  Sender: AMGEN
  Company Number: JP-AMGEN-JPNSP2024230088

PATIENT
  Age: 72 Year
  Sex: Female

DRUGS (5)
  1. ROMOSOZUMAB [Suspect]
     Active Substance: ROMOSOZUMAB
     Indication: Atypical fracture
     Dosage: UNK
     Route: 065
  2. ROMOSOZUMAB [Suspect]
     Active Substance: ROMOSOZUMAB
     Indication: Osteoporosis
  3. DENOSUMAB [Suspect]
     Active Substance: DENOSUMAB
     Indication: Osteoporosis
     Dosage: UNK
     Route: 065
  4. DENOSUMAB [Suspect]
     Active Substance: DENOSUMAB
     Indication: Atypical fracture
  5. TERIPARATIDE [Suspect]
     Active Substance: TERIPARATIDE
     Indication: Atypical fracture
     Dosage: UNK
     Route: 065

REACTIONS (2)
  - Atypical femur fracture [Unknown]
  - Fall [Unknown]
